FAERS Safety Report 9157915 (Version 1)
Quarter: 2013Q1

REPORT INFORMATION
  Report Type: Spontaneous
  Country: US (occurrence: US)
  Receive Date: 20130312
  Receipt Date: 20130312
  Transmission Date: 20140127
  Serious: No
  Sender: FDA-Public Use
  Company Number: US-009507513-1302USA009660

PATIENT
  Sex: Female

DRUGS (1)
  1. JUVISYNC [Suspect]
     Indication: TYPE 2 DIABETES MELLITUS
     Dosage: UNK, QD
     Route: 048

REACTIONS (1)
  - Nausea [Not Recovered/Not Resolved]
